FAERS Safety Report 22009463 (Version 1)
Quarter: 2023Q1

REPORT INFORMATION
  Report Type: Spontaneous
  Country: FR (occurrence: FR)
  Receive Date: 20230220
  Receipt Date: 20230220
  Transmission Date: 20230417
  Serious: Yes (Other)
  Sender: FDA-Public Use
  Company Number: FR-SANOFI-01487027

PATIENT
  Sex: Male

DRUGS (1)
  1. CLOBAZAM [Suspect]
     Active Substance: CLOBAZAM
     Indication: Product used for unknown indication
     Dosage: UNK
     Route: 065

REACTIONS (7)
  - Suicidal ideation [Unknown]
  - Vomiting [Unknown]
  - Diarrhoea [Unknown]
  - Visual impairment [Unknown]
  - Balance disorder [Unknown]
  - Muscle disorder [Unknown]
  - Memory impairment [Unknown]
